FAERS Safety Report 5957550-6 (Version None)
Quarter: 2008Q4

REPORT INFORMATION
  Report Type: 
  Country: None (occurrence: None)
  Receive Date: 20081117
  Receipt Date: 20081117
  Transmission Date: 20090506
  Serious: Yes (Hospitalization)
  Sender: FDA-Public Use
  Company Number: None

PATIENT
  Age: 61 Year
  Sex: Male
  Weight: 86.6 kg

DRUGS (1)
  1. PROFILNINE [Suspect]
     Indication: SUBARACHNOID HAEMORRHAGE
     Dosage: 4760  -55 INT. UNITS ONCE IV
     Route: 042
     Dates: start: 20081019, end: 20081019

REACTIONS (5)
  - BLOOD CREATININE INCREASED [None]
  - DIALYSIS [None]
  - RENAL CORTICAL NECROSIS [None]
  - THROMBOTIC MICROANGIOPATHY [None]
  - URINE OUTPUT DECREASED [None]
